FAERS Safety Report 13612016 (Version 1)
Quarter: 2017Q2

REPORT INFORMATION
  Report Type: Spontaneous
  Country: US (occurrence: US)
  Receive Date: 20170605
  Receipt Date: 20170605
  Transmission Date: 20170830
  Serious: Yes (Hospitalization)
  Sender: FDA-Public Use
  Company Number: None

PATIENT
  Age: 70 Year
  Sex: Male

DRUGS (1)
  1. APIXIBAN [Suspect]
     Active Substance: APIXABAN
     Route: 048
     Dates: start: 20170105

REACTIONS (6)
  - Hepatic cirrhosis [None]
  - Oesophagitis [None]
  - Gastrointestinal haemorrhage [None]
  - Deep vein thrombosis [None]
  - Small intestinal obstruction [None]
  - Haematemesis [None]

NARRATIVE: CASE EVENT DATE: 20170219
